FAERS Safety Report 14292752 (Version 1)
Quarter: 2017Q4

REPORT INFORMATION
  Report Type: Spontaneous
  Country: US (occurrence: US)
  Receive Date: 20171215
  Receipt Date: 20171215
  Transmission Date: 20180321
  Serious: No
  Sender: FDA-Public Use
  Company Number: US-BAUSCH-BL-2016-022490

PATIENT
  Age: 66 Year
  Sex: Male

DRUGS (1)
  1. TIMOPTIC [Suspect]
     Active Substance: TIMOLOL MALEATE
     Indication: PRODUCT USED FOR UNKNOWN INDICATION
     Dosage: 1 DROP ODOS
     Route: 047
     Dates: start: 2006

REACTIONS (2)
  - Foreign body in eye [Unknown]
  - Conjunctival abrasion [Unknown]

NARRATIVE: CASE EVENT DATE: 20090801
